FAERS Safety Report 19836406 (Version 3)
Quarter: 2022Q4

REPORT INFORMATION
  Report Type: Spontaneous
  Country: US (occurrence: US)
  Receive Date: 20210914
  Receipt Date: 20221107
  Transmission Date: 20230113
  Serious: Yes (Hospitalization)
  Sender: FDA-Public Use
  Company Number: US-SK LIFE SCIENCE, INC.-SKPVG-2021-000713

PATIENT

DRUGS (9)
  1. XCOPRI [Suspect]
     Active Substance: CENOBAMATE
     Indication: Seizure
     Dosage: UNK
     Route: 048
     Dates: start: 202107
  2. XCOPRI [Suspect]
     Active Substance: CENOBAMATE
     Indication: Epilepsy
     Dosage: 200 MG AND 50 MG, QD, 1 TABLET OF EACH SIZE.
     Route: 048
  3. XCOPRI [Suspect]
     Active Substance: CENOBAMATE
     Dosage: 300MG TWO 150MG ONCE DAILY
     Route: 048
     Dates: end: 20221028
  4. FYCOMPA [Concomitant]
     Active Substance: PERAMPANEL
     Indication: Product used for unknown indication
     Dosage: 4 MILLIGRAM, QD
     Route: 065
  5. LAMOTRIGINE [Concomitant]
     Active Substance: LAMOTRIGINE
     Indication: Product used for unknown indication
     Dosage: 250 MILLIGRAM, BID TABS IN THE MORNING
     Route: 065
  6. LAMOTRIGINE [Concomitant]
     Active Substance: LAMOTRIGINE
     Dosage: 100MG IN THE MORNING AND TWO TABLETS AT NIGHT
     Route: 065
  7. LAMOTRIGINE [Concomitant]
     Active Substance: LAMOTRIGINE
     Dosage: 3 TABS IN THE MORNING AND 2 IN THE EVENING; 100MG
     Route: 065
  8. KEPPRA [Concomitant]
     Active Substance: LEVETIRACETAM
     Indication: Product used for unknown indication
     Dosage: 2000MG TWICE A DAY
     Route: 065
  9. KEPPRA [Concomitant]
     Active Substance: LEVETIRACETAM
     Dosage: 4000MG TWO TABLETS IN THE MORNING AND TWO TABLETS AT NIGHT
     Route: 065

REACTIONS (5)
  - Ill-defined disorder [Unknown]
  - Seizure [Unknown]
  - Product dose omission issue [Recovered/Resolved]
  - Product dose omission issue [Not Recovered/Not Resolved]
  - Seizure [Unknown]

NARRATIVE: CASE EVENT DATE: 20220101
